FAERS Safety Report 4730159-8 (Version None)
Quarter: 2005Q3

REPORT INFORMATION
  Report Type: 
  Country: None (occurrence: None)
  Receive Date: 20050728
  Receipt Date: 20050714
  Transmission Date: 20060218
  Serious: Yes (Life-Threatening)
  Sender: FDA-Public Use
  Company Number: RENA-11431

PATIENT
  Age: 57 Year
  Sex: Female

DRUGS (11)
  1. PHOSBLOCK [Suspect]
     Indication: HYPERPHOSPHATAEMIA
     Dosage: 0.25 G TID PO
     Route: 048
     Dates: start: 20050414, end: 20050615
  2. GIGOXIN [Concomitant]
  3. FUROSEMIDE [Concomitant]
  4. ASPIRIN [Concomitant]
  5. PRECIPITATED CALCIUM CARBONATE [Concomitant]
  6. VERAPAMIL HYDROCHLORIDE [Concomitant]
  7. TEPRENONE [Concomitant]
  8. D-SORBITOL [Concomitant]
  9. TELMISARTAN [Concomitant]
  10. EFONIDIPINE BESILATE [Concomitant]
  11. EPOETIN ALFA [Concomitant]

REACTIONS (5)
  - ANAEMIA [None]
  - FAECES HARD [None]
  - HAEMORRHAGE [None]
  - LARGE INTESTINE PERFORATION [None]
  - TREMOR [None]
